FAERS Safety Report 24390217 (Version 1)
Quarter: 2024Q4

REPORT INFORMATION
  Report Type: Spontaneous
  Country: DE (occurrence: DE)
  Receive Date: 20241003
  Receipt Date: 20241003
  Transmission Date: 20250115
  Serious: Yes (Other)
  Sender: AQUESTIVE THERAPEUTICS
  Company Number: DE-AQUESTIVE THERAPEUTICS, INC.-2024AQU00082

PATIENT
  Age: 59 Year
  Sex: Male

DRUGS (1)
  1. RILUZOLE [Suspect]
     Active Substance: RILUZOLE
     Indication: Amyotrophic lateral sclerosis
     Dosage: UNK
     Dates: start: 202402

REACTIONS (6)
  - Respiratory distress [Recovered/Resolved]
  - Bradycardia [Recovered/Resolved]
  - Gait disturbance [Recovered/Resolved]
  - Balance disorder [Recovered/Resolved]
  - Fall [Recovered/Resolved]
  - Coordination abnormal [Recovered/Resolved]
